FAERS Safety Report 6154419-1 (Version None)
Quarter: 2009Q2

REPORT INFORMATION
  Report Type: 
  Country: None (occurrence: None)
  Receive Date: 20090414
  Receipt Date: 20090407
  Transmission Date: 20091009
  Serious: Yes (Hospitalization)
  Sender: FDA-Public Use
  Company Number: US-AMGEN-KDL336843

PATIENT
  Sex: Female
  Weight: 70.4 kg

DRUGS (12)
  1. ENBREL [Suspect]
     Indication: RHEUMATOID ARTHRITIS
     Route: 058
     Dates: start: 20070827
  2. PLAQUENIL [Concomitant]
     Route: 048
  3. CALCIUM CARBONATE [Concomitant]
  4. CENTRUM SILVER [Concomitant]
  5. DETROL [Concomitant]
  6. DICLOFENAC [Concomitant]
  7. EVISTA [Concomitant]
  8. PREVACID [Concomitant]
  9. TRIAMTERENE [Concomitant]
  10. ZETIA [Concomitant]
  11. GLUCOSAMINE W/CHONDROITIN SULFATES [Concomitant]
  12. METHYLPREDNISOLONE 4MG TAB [Concomitant]
     Dates: start: 20080709, end: 20080709

REACTIONS (2)
  - ARTHRALGIA [None]
  - OSTEOARTHRITIS [None]
